FAERS Safety Report 17484391 (Version 8)
Quarter: 2021Q1

REPORT INFORMATION
  Report Type: Spontaneous
  Country: US (occurrence: US)
  Receive Date: 20200302
  Receipt Date: 20210305
  Transmission Date: 20210419
  Serious: Yes (Other)
  Sender: FDA-Public Use
  Company Number: US-GILEAD-2020-0452915

PATIENT
  Age: 51 Year
  Sex: Male
  Weight: 88.44 kg

DRUGS (55)
  1. SINEMET [Concomitant]
     Active Substance: CARBIDOPA\LEVODOPA
  2. COLACE [Concomitant]
     Active Substance: DOCUSATE SODIUM
  3. AZT [Concomitant]
     Active Substance: ZIDOVUDINE
     Indication: HIV INFECTION
  4. ALBUTEROL HFA [Concomitant]
     Active Substance: ALBUTEROL SULFATE
  5. PROVENTIL HFA [Concomitant]
     Active Substance: ALBUTEROL SULFATE
  6. PREDNISONE. [Concomitant]
     Active Substance: PREDNISONE
  7. VANCOMYCIN [Concomitant]
     Active Substance: VANCOMYCIN
  8. LIVALO [Concomitant]
     Active Substance: PITAVASTATIN CALCIUM
  9. PEGINTERFERON ALFA?2A;RIBAVIRIN [Concomitant]
  10. INFLUENZA VACCINE [Concomitant]
     Active Substance: INFLUENZA VIRUS VACCINE
  11. ACETAMINOPHEN. [Concomitant]
     Active Substance: ACETAMINOPHEN
  12. ASPIRIN [ACETYLSALICYLIC ACID] [Concomitant]
     Active Substance: ASPIRIN
  13. BACTRIM [Concomitant]
     Active Substance: SULFAMETHOXAZOLE\TRIMETHOPRIM
  14. CORTISONE [Concomitant]
     Active Substance: CORTISONE
  15. OMEPRAZOLE. [Concomitant]
     Active Substance: OMEPRAZOLE
  16. TETRACYCLINE [Concomitant]
     Active Substance: TETRACYCLINE
  17. CIPROFLOXACIN. [Concomitant]
     Active Substance: CIPROFLOXACIN
  18. FLEET ENEMA [Concomitant]
     Active Substance: SODIUM PHOSPHATE, DIBASIC\SODIUM PHOSPHATE, MONOBASIC
  19. TRUVADA [Suspect]
     Active Substance: EMTRICITABINE\TENOFOVIR DISOPROXIL FUMARATE
     Indication: HIV INFECTION
     Dosage: UNK
     Route: 048
     Dates: start: 20090225, end: 20100809
  20. AMOXICILLIN. [Concomitant]
     Active Substance: AMOXICILLIN
  21. PENICILLIN [PENICILLIN NOS] [Concomitant]
     Active Substance: PENICILLIN
  22. VIRAMUNE [Concomitant]
     Active Substance: NEVIRAPINE
     Indication: HIV INFECTION
  23. ZIAGEN [Concomitant]
     Active Substance: ABACAVIR SULFATE
     Indication: HIV INFECTION
  24. PROZAC [Concomitant]
     Active Substance: FLUOXETINE HYDROCHLORIDE
  25. CEFTRIAXONE. [Concomitant]
     Active Substance: CEFTRIAXONE
  26. VALTREX [Concomitant]
     Active Substance: VALACYCLOVIR HYDROCHLORIDE
  27. FLOMAX RELIEF [Concomitant]
     Active Substance: TAMSULOSIN HYDROCHLORIDE
  28. TRUVADA [Suspect]
     Active Substance: EMTRICITABINE\TENOFOVIR DISOPROXIL FUMARATE
     Dosage: UNK
     Route: 048
     Dates: start: 20090225, end: 20100809
  29. COMBIVIR [Concomitant]
     Active Substance: LAMIVUDINE\ZIDOVUDINE
     Indication: HIV INFECTION
  30. LEVOFLOXACIN. [Concomitant]
     Active Substance: LEVOFLOXACIN
  31. FLEXERIL [CEFIXIME] [Concomitant]
     Active Substance: CEFIXIME
  32. MACROBID [CLARITHROMYCIN] [Concomitant]
     Active Substance: CLARITHROMYCIN
  33. TRUVADA [Suspect]
     Active Substance: EMTRICITABINE\TENOFOVIR DISOPROXIL FUMARATE
     Dosage: UNK
     Route: 065
     Dates: start: 20081203, end: 20100809
  34. ISENTRESS [Concomitant]
     Active Substance: RALTEGRAVIR POTASSIUM
     Indication: HIV INFECTION
  35. REYATAZ [Concomitant]
     Active Substance: ATAZANAVIR SULFATE
     Indication: HIV INFECTION
  36. TIVICAY [Concomitant]
     Active Substance: DOLUTEGRAVIR SODIUM
     Indication: HIV INFECTION
  37. HYDROCORTISONE. [Concomitant]
     Active Substance: HYDROCORTISONE
  38. SENNA S [Concomitant]
     Active Substance: DOCUSATE SODIUM\SENNA LEAF
  39. DITROPAN [Concomitant]
     Active Substance: OXYBUTYNIN CHLORIDE
  40. MACROBID [CLARITHROMYCIN] [Concomitant]
     Active Substance: CLARITHROMYCIN
  41. ROLAIDS [CALCIUM CARBONATE;MAGNESIUM HYDROXIDE] [Concomitant]
  42. NEUPOGEN [Concomitant]
     Active Substance: FILGRASTIM
  43. NORVIR [Concomitant]
     Active Substance: RITONAVIR
     Indication: HIV INFECTION
  44. TYLENOL WITH CODEINE [Concomitant]
     Active Substance: ACETAMINOPHEN\CODEINE PHOSPHATE
  45. MECLIZINE [Concomitant]
     Active Substance: MECLIZINE HYDROCHLORIDE
  46. HEPATITIS A VACCINE [Concomitant]
     Active Substance: HEPATITIS A VIRUS STRAIN HM175 ANTIGEN (FORMALDEHYDE INACTIVATED)
  47. TRAMADOL. [Concomitant]
     Active Substance: TRAMADOL
  48. EDURANT [Concomitant]
     Active Substance: RILPIVIRINE HYDROCHLORIDE
     Indication: HIV INFECTION
  49. KALETRA [Concomitant]
     Active Substance: LOPINAVIR\RITONAVIR
     Indication: HIV INFECTION
  50. SUSTIVA [Concomitant]
     Active Substance: EFAVIRENZ
     Indication: HIV INFECTION
  51. IBUPROFEN. [Concomitant]
     Active Substance: IBUPROFEN
  52. VISIPAQUE [Concomitant]
     Active Substance: IODIXANOL
  53. MARINOL [Concomitant]
     Active Substance: DRONABINOL
  54. CIALIS [Concomitant]
     Active Substance: TADALAFIL
  55. VENTOLIN HFA [Concomitant]
     Active Substance: ALBUTEROL SULFATE

REACTIONS (17)
  - Nephrolithiasis [Recovered/Resolved]
  - Economic problem [Unknown]
  - Anhedonia [Unknown]
  - Emotional distress [Unknown]
  - Fear of falling [Unknown]
  - Cerebral haemorrhage [Unknown]
  - Osteoporosis [Not Recovered/Not Resolved]
  - Tooth fracture [Unknown]
  - Loss of personal independence in daily activities [Unknown]
  - Renal impairment [Unknown]
  - Tooth loss [Unknown]
  - Physical disability [Unknown]
  - Osteopenia [Not Recovered/Not Resolved]
  - Pain [Unknown]
  - Condition aggravated [Unknown]
  - Bone density decreased [Unknown]
  - Anxiety [Unknown]

NARRATIVE: CASE EVENT DATE: 200909
